FAERS Safety Report 5698383 (Version 2)
Quarter: 2013Q1

REPORT INFORMATION
  Report Type: Report from Study
  Country: GB (occurrence: GB)
  Receive Date: 20041220
  Receipt Date: 20130222
  Transmission Date: 20140127
  Serious: Yes (Other)
  Sender: FDA-Public Use
  Company Number: PHFR2004GB01275

PATIENT
  Age: 47 Year
  Sex: Male

DRUGS (6)
  1. CLOZARIL [Suspect]
     Indication: SCHIZOPHRENIA
     Dosage: 100MG MANE/200MG NOCTE
     Route: 048
     Dates: start: 20040211
  2. CLOZARIL [Suspect]
     Dosage: 275MG/DAY
  3. CLOZARIL [Suspect]
     Dosage: 400MG/DAY
     Route: 048
     Dates: start: 20040323
  4. TRAZODONE [Concomitant]
     Dosage: 200MG/DAY
     Route: 065
     Dates: end: 20040310
  5. CARBAMAZEPINE [Concomitant]
     Dosage: 400MG/DAY
     Route: 048
     Dates: end: 20040210
  6. CHLORPROMAZINE [Concomitant]
     Dosage: 300MG/DAY
     Route: 048
     Dates: end: 20040226

REACTIONS (26)
  - Delirium [Recovered/Resolved]
  - Agitation [Recovered/Resolved]
  - Restlessness [Recovered/Resolved]
  - Confusional state [Recovered/Resolved]
  - Anxiety [Recovered/Resolved]
  - Hallucination, visual [Unknown]
  - Nightmare [Unknown]
  - Tachycardia [Recovered/Resolved]
  - Hyperhidrosis [Recovered/Resolved]
  - Lower respiratory tract infection [Unknown]
  - Influenza like illness [Unknown]
  - C-reactive protein increased [Unknown]
  - Dyspnoea [Recovered/Resolved]
  - White blood cell count increased [Unknown]
  - Malaise [Unknown]
  - Blood triglycerides increased [Unknown]
  - Blood cholesterol increased [Unknown]
  - Salivary hypersecretion [Unknown]
  - Red blood cell count decreased [Unknown]
  - Haemoglobin decreased [Unknown]
  - Incontinence [Not Recovered/Not Resolved]
  - Weight decreased [Unknown]
  - Blood urea increased [Unknown]
  - Blood glucose increased [Not Recovered/Not Resolved]
  - Blood lactate dehydrogenase decreased [Unknown]
  - Drug level increased [Unknown]
